FAERS Safety Report 9039196 (Version 1)
Quarter: 2013Q2

REPORT INFORMATION
  Report Type: Spontaneous
  Country: US (occurrence: None)
  Receive Date: 20130123
  Receipt Date: 20130123
  Transmission Date: 20140414
  Serious: Yes (Hospitalization, Disabling)
  Sender: FDA-Public Use
  Company Number: None

PATIENT
  Age: 46 Year
  Sex: Female
  Weight: 68.2 kg

DRUGS (5)
  1. RITUXIMAB [Suspect]
     Indication: PSEUDOLYMPHOMA
     Dosage: 1000 MG IV X 2
     Route: 042
     Dates: start: 20120827
  2. SYNTHROID [Concomitant]
  3. ALEVE [Concomitant]
  4. NUVARING [Concomitant]
  5. REFRESH EYEDROPS AND OINTMENT [Concomitant]

REACTIONS (6)
  - Blindness unilateral [None]
  - Post procedural complication [None]
  - No therapeutic response [None]
  - Eye disorder [None]
  - Ischaemia [None]
  - Hypoperfusion [None]
